FAERS Safety Report 9422114 (Version 1)
Quarter: 2013Q3

REPORT INFORMATION
  Report Type: Spontaneous
  Country: US (occurrence: None)
  Receive Date: 20130725
  Receipt Date: 20130725
  Transmission Date: 20140515
  Serious: Yes (Life-Threatening, Hospitalization)
  Sender: FDA-Public Use
  Company Number: None

PATIENT
  Age: 27 None
  Sex: Female

DRUGS (17)
  1. TECFIDERA [Suspect]
     Indication: RELAPSING-REMITTING MULTIPLE SCLEROSIS
     Dosage: 2 PILLS TWICE DAILY BY MOUTH
     Route: 048
     Dates: start: 20130612
  2. ALLEGRA [Concomitant]
  3. BETHANECHOL [Concomitant]
  4. LEVOTHYROXIN [Concomitant]
  5. LOESTRIN FE [Concomitant]
  6. PREVACID [Concomitant]
  7. PROVIGIL [Concomitant]
  8. TECFIDERA [Concomitant]
  9. TRAZODONE [Concomitant]
  10. VLAIUM [Concomitant]
  11. ACETAMINOPHEN [Concomitant]
  12. VITAMIN B [Concomitant]
  13. VITAMIN D [Concomitant]
  14. CRANBERRY PILL [Concomitant]
  15. DOCUSATE SODIUM [Concomitant]
  16. FIBER POWDER [Concomitant]
  17. OMEGA 3 FISH OIL [Concomitant]

REACTIONS (10)
  - Chest pain [None]
  - Back pain [None]
  - Pyrexia [None]
  - Nausea [None]
  - Vomiting [None]
  - Diarrhoea [None]
  - Chills [None]
  - Abdominal pain [None]
  - Asthenia [None]
  - Gallbladder disorder [None]
